FAERS Safety Report 8262056-8 (Version None)
Quarter: 2012Q2

REPORT INFORMATION
  Report Type: 
  Country: None (occurrence: None)
  Receive Date: 20120405
  Receipt Date: 20120327
  Transmission Date: 20120825
  Serious: Yes (Other)
  Sender: FDA-Public Use
  Company Number: PHHY2010US46166

PATIENT
  Sex: Female

DRUGS (20)
  1. AFINITOR [Suspect]
     Indication: RENAL CANCER METASTATIC
     Dosage: 10 MG, QD
     Route: 048
     Dates: start: 20100607, end: 20101016
  2. AFINITOR [Suspect]
     Indication: RENAL CELL CARCINOMA STAGE IV
     Dosage: 5 MG, UNK
     Route: 048
     Dates: start: 20100623, end: 20101101
  3. AFINITOR [Suspect]
     Dosage: 5 MG, UNK
     Route: 048
  4. AFINITOR [Suspect]
     Dosage: 5 MG, DAILY
     Route: 048
     Dates: end: 20120228
  5. ZYPREXA [Concomitant]
     Dosage: 2.5 MG, QHS
     Route: 048
  6. OLANZAPINE [Concomitant]
     Dosage: UNK
  7. VITAMIN D [Concomitant]
     Dosage: UNK
  8. AFINITOR [Suspect]
     Dosage: 10 MG, DAILY
     Route: 048
     Dates: start: 20110609
  9. COZAAR [Concomitant]
     Dosage: 2.5 MG, DAILY
     Route: 048
  10. LEVOTHROID [Concomitant]
     Dosage: 75 UG, UNK
     Route: 048
  11. MORPHINE [Concomitant]
     Dosage: UNK
  12. ZOMETA [Suspect]
     Indication: RENAL CELL CARCINOMA STAGE IV
     Dosage: UNK
  13. AFINITOR [Suspect]
     Dosage: 5 MG, DAILY
     Route: 048
     Dates: start: 20110103, end: 20110609
  14. LOSARTAN POTASSIUM [Concomitant]
     Dosage: UNK
  15. MEGESTROL ACETATE [Concomitant]
     Dosage: UNK
  16. CRANBERRY  PILL [Concomitant]
     Dosage: UNK
  17. AFINITOR [Suspect]
     Dosage: 10 MG, UNK
     Route: 048
  18. CALCIUM CARBONATE [Concomitant]
     Dosage: UNK
  19. LEVOTHYROXINE SODIUM [Concomitant]
     Dosage: UNK
  20. PROMETHAZINE [Concomitant]
     Dosage: UNK

REACTIONS (22)
  - COUGH [None]
  - LUNG INFILTRATION [None]
  - HAEMORRHAGE [None]
  - LOCALISED INFECTION [None]
  - ANXIETY [None]
  - SLEEP DISORDER [None]
  - INGROWING NAIL [None]
  - BRONCHITIS [None]
  - APHAGIA [None]
  - FATIGUE [None]
  - MALAISE [None]
  - OEDEMA PERIPHERAL [None]
  - INFLAMMATION [None]
  - DYSPHAGIA [None]
  - ASTHENIA [None]
  - NEOPLASM PROGRESSION [None]
  - NEOPLASM MALIGNANT [None]
  - OROPHARYNGEAL PAIN [None]
  - URINARY TRACT INFECTION [None]
  - PNEUMONIA [None]
  - NAUSEA [None]
  - BLOOD PRESSURE INCREASED [None]
